FAERS Safety Report 7453623-X (Version None)
Quarter: 2011Q2

REPORT INFORMATION
  Report Type: 
  Country: None (occurrence: None)
  Receive Date: 20110502
  Receipt Date: 20110426
  Transmission Date: 20111010
  Serious: Yes (Other)
  Sender: FDA-Public Use
  Company Number: US-AMGEN-USASP2011021947

PATIENT
  Sex: Female

DRUGS (2)
  1. DANAZOL [Concomitant]
  2. NPLATE [Suspect]
     Indication: IDIOPATHIC THROMBOCYTOPENIC PURPURA
     Dates: start: 20090113

REACTIONS (2)
  - BONE MARROW RETICULIN FIBROSIS [None]
  - FIBROSIS [None]
